FAERS Safety Report 9235904 (Version 1)
Quarter: 2013Q2

REPORT INFORMATION
  Report Type: Spontaneous
  Country: US (occurrence: US)
  Receive Date: 20130417
  Receipt Date: 20130417
  Transmission Date: 20140414
  Serious: Yes (Other)
  Sender: FDA-Public Use
  Company Number: US-ELI_LILLY_AND_COMPANY-US201304001609

PATIENT
  Sex: Female

DRUGS (6)
  1. CYMBALTA [Suspect]
     Dosage: 60 MG, QD
  2. CYMBALTA [Suspect]
     Dosage: 60 MG, QOD
  3. CYMBALTA [Suspect]
     Dosage: 30 MG, QD
  4. CYMBALTA [Suspect]
     Dosage: 30 MG, QOD
  5. CYMBALTA [Suspect]
     Dosage: 20 MG, QD
  6. CYMBALTA [Suspect]
     Dosage: 20 MG, QOD

REACTIONS (16)
  - Hypertension [Unknown]
  - Malaise [Unknown]
  - Drug withdrawal syndrome [Unknown]
  - Pruritus [Unknown]
  - Nausea [Unknown]
  - Headache [Unknown]
  - Paraesthesia [Unknown]
  - Hallucination [Unknown]
  - Abnormal dreams [Unknown]
  - Malaise [Unknown]
  - Influenza like illness [Unknown]
  - Pain [Unknown]
  - Thinking abnormal [Unknown]
  - Speech disorder [Unknown]
  - Hearing impaired [Unknown]
  - Intentional drug misuse [Unknown]
